FAERS Safety Report 21716641 (Version 3)
Quarter: 2022Q4

REPORT INFORMATION
  Report Type: Report from Study
  Country: US (occurrence: US)
  Receive Date: 20221212
  Receipt Date: 20221229
  Transmission Date: 20230113
  Serious: Yes (Hospitalization)
  Sender: FDA-Public Use
  Company Number: US-GILEAD-2022-0608394

PATIENT
  Sex: Female

DRUGS (4)
  1. AMBRISENTAN [Suspect]
     Active Substance: AMBRISENTAN
     Indication: Pulmonary arterial hypertension
     Dosage: 5 MG QD
     Route: 065
     Dates: start: 20220318
  2. REMODULIN [Suspect]
     Active Substance: TREPROSTINIL
     Indication: Product used for unknown indication
     Dosage: UNKNOWN
     Route: 058
  3. REMODULIN [Suspect]
     Active Substance: TREPROSTINIL
     Dosage: UNKNOWN
     Route: 042
  4. TADALAFIL [Concomitant]
     Active Substance: TADALAFIL

REACTIONS (5)
  - Infusion site haemorrhage [Unknown]
  - Injection site reaction [Unknown]
  - Injection site inflammation [Unknown]
  - Injection site erythema [Not Recovered/Not Resolved]
  - Off label use [Unknown]
